FAERS Safety Report 18394993 (Version 1)
Quarter: 2020Q4

REPORT INFORMATION
  Report Type: Spontaneous
  Country: US (occurrence: US)
  Receive Date: 20201016
  Receipt Date: 20201016
  Transmission Date: 20210114
  Serious: No
  Sender: FDA-Public Use
  Company Number: US-OTSUKA-2020_024476

PATIENT
  Sex: Male

DRUGS (1)
  1. INQOVI [Suspect]
     Active Substance: CEDAZURIDINE\DECITABINE
     Indication: PRODUCT USED FOR UNKNOWN INDICATION
     Dosage: 135 MG, QD (35-100MG DAILY, DAYS 1-5 EVERY 28 DAYS)
     Route: 065
     Dates: start: 20200928

REACTIONS (3)
  - Headache [Unknown]
  - Fatigue [Unknown]
  - Asthenia [Unknown]
